FAERS Safety Report 6303652-4 (Version None)
Quarter: 2009Q3

REPORT INFORMATION
  Report Type: 
  Country: None (occurrence: None)
  Receive Date: 20090810
  Receipt Date: 20090731
  Transmission Date: 20100115
  Serious: Yes (Other)
  Sender: FDA-Public Use
  Company Number: NZ-ABBOTT-09P-118-0588646-00

PATIENT
  Sex: Female

DRUGS (1)
  1. HUMIRA [Suspect]
     Indication: RHEUMATOID ARTHRITIS
     Dates: start: 20090522, end: 20090703

REACTIONS (7)
  - AXILLARY PAIN [None]
  - OEDEMA PERIPHERAL [None]
  - PLEURITIC PAIN [None]
  - POLLAKIURIA [None]
  - PULMONARY MASS [None]
  - SKIN NODULE [None]
  - SLEEP DISORDER [None]
